FAERS Safety Report 9133348 (Version 2)
Quarter: 2013Q3

REPORT INFORMATION
  Report Type: Report from Study
  Country: US (occurrence: US)
  Receive Date: 20130301
  Receipt Date: 20130917
  Transmission Date: 20140515
  Serious: Yes (Other)
  Sender: FDA-Public Use
  Company Number: US-ROCHE-1160293

PATIENT
  Age: 35 Year
  Sex: Female

DRUGS (1)
  1. TRASTUZUMAB EMTANSINE [Suspect]
     Indication: BREAST CANCER
     Route: 065

REACTIONS (14)
  - Brain neoplasm [Unknown]
  - Disease progression [Unknown]
  - Eye disorder [Unknown]
  - Oropharyngeal pain [Unknown]
  - Nasopharyngitis [Unknown]
  - Carcinoembryonic antigen increased [Unknown]
  - Dyspnoea [Unknown]
  - Pulmonary fibrosis [Unknown]
  - Pain in extremity [Unknown]
  - Neuropathy peripheral [Unknown]
  - Rash [Unknown]
  - Dry eye [Unknown]
  - Dry mouth [Unknown]
  - Vulvovaginal dryness [Unknown]
